FAERS Safety Report 14108732 (Version 1)
Quarter: 2017Q4

REPORT INFORMATION
  Report Type: Not Available
  Country: US (occurrence: US)
  Receive Date: 20171019
  Receipt Date: 20171019
  Transmission Date: 20180321
  Serious: No
  Sender: FDA-Public Use
  Company Number: US-NEUROCRINE BIOSCIENCES INC.-2017NBI00573

PATIENT
  Age: 74 Year
  Sex: Female

DRUGS (21)
  1. INGREZZA [Suspect]
     Active Substance: VALBENAZINE
     Indication: PRODUCT USED FOR UNKNOWN INDICATION
     Route: 048
     Dates: start: 20170710, end: 20170716
  2. BENADRYL [Concomitant]
     Active Substance: DIPHENHYDRAMINE HYDROCHLORIDE
  3. MIDODRIN [Concomitant]
  4. IRON [Concomitant]
     Active Substance: IRON
  5. MAGOX [Concomitant]
  6. INGREZZA [Suspect]
     Active Substance: VALBENAZINE
     Route: 048
     Dates: start: 20170717, end: 20170903
  7. ASPIRIN. [Concomitant]
     Active Substance: ASPIRIN
  8. COLACE [Concomitant]
     Active Substance: DOCUSATE SODIUM
  9. DULCOLAX NOS [Concomitant]
     Active Substance: BISACODYL OR DOCUSATE SODIUM
  10. LACTOBILLUS [Concomitant]
  11. MILK OF MAG [Concomitant]
  12. LEVOTHYROXINE. [Concomitant]
     Active Substance: LEVOTHYROXINE
  13. MULTIVIT [Concomitant]
     Active Substance: VITAMINS
  14. TYLENOL [Concomitant]
     Active Substance: ACETAMINOPHEN
  15. CARBIDOPA-LEVODPA [Concomitant]
  16. VITAMIN B12 [Concomitant]
     Active Substance: CYANOCOBALAMIN
  17. PRAVASTATIN. [Concomitant]
     Active Substance: PRAVASTATIN
  18. BUDESONIDE. [Concomitant]
     Active Substance: BUDESONIDE
  19. CYMBALTA [Concomitant]
     Active Substance: DULOXETINE HYDROCHLORIDE
  20. PEPCID [Concomitant]
     Active Substance: FAMOTIDINE
  21. PERFORM [Concomitant]
     Active Substance: MENTHOL

REACTIONS (4)
  - Dysphonia [Not Recovered/Not Resolved]
  - Hallucination [Unknown]
  - Thinking abnormal [Unknown]
  - Slow speech [Unknown]

NARRATIVE: CASE EVENT DATE: 20170725
